FAERS Safety Report 7508650-0 (Version None)
Quarter: 2011Q2

REPORT INFORMATION
  Report Type: 
  Country: None (occurrence: None)
  Receive Date: 20110527
  Receipt Date: 20100416
  Transmission Date: 20111010
  Serious: No
  Sender: FDA-Public Use
  Company Number: A0855481A

PATIENT
  Age: 60 Year
  Sex: Female

DRUGS (3)
  1. VENTOLIN [Suspect]
     Indication: ASTHMA
     Dosage: 2PUFF TWICE PER DAY
     Route: 055
  2. VITAMINS [Concomitant]
  3. GLUCOSAMINE [Concomitant]

REACTIONS (4)
  - PALPITATIONS [None]
  - PRODUCT QUALITY ISSUE [None]
  - CHEST DISCOMFORT [None]
  - SPUTUM ABNORMAL [None]
